FAERS Safety Report 10203540 (Version 1)
Quarter: 2014Q2

REPORT INFORMATION
  Report Type: Spontaneous
  Country: GB (occurrence: GB)
  Receive Date: 20140529
  Receipt Date: 20140529
  Transmission Date: 20141212
  Serious: Yes (Life-Threatening)
  Sender: FDA-Public Use
  Company Number: GB-MYLANLABS-2014S1011607

PATIENT
  Age: 43 Year
  Sex: Female
  Weight: 61 kg

DRUGS (19)
  1. ONDANSETRON [Suspect]
     Dates: start: 20140502
  2. AVEENO [Concomitant]
     Dates: start: 20140205
  3. BETAMETHASONE VALERATE [Concomitant]
     Dates: start: 20140117, end: 20140214
  4. CYCLIZINE [Concomitant]
     Dates: start: 20140108
  5. DIAZEPAM [Concomitant]
     Dates: start: 20140228, end: 20140321
  6. FENTANYL [Concomitant]
     Dates: start: 20140108
  7. GLYCERYL TRINITRATE [Concomitant]
     Dates: start: 20140414
  8. IBUPROFEN [Concomitant]
     Dates: start: 20140129, end: 20140306
  9. LEVOTHYROXINE [Concomitant]
     Dates: start: 20140108
  10. NADOLOL [Concomitant]
     Dates: start: 20140108
  11. OILATUM /00103901/ [Concomitant]
     Dates: start: 20140220, end: 20140302
  12. PARACETAMOL [Concomitant]
     Dates: start: 20140108
  13. SENNA [Concomitant]
     Dates: start: 20140306, end: 20140405
  14. SENOKOT [Concomitant]
     Dates: start: 20140228, end: 20140301
  15. SUNVIT [Concomitant]
     Dates: start: 20140108
  16. TRAMADOL [Concomitant]
     Dates: start: 20140108
  17. TRIMETHOPRIM [Concomitant]
     Dates: start: 20140417, end: 20140420
  18. VANIQA /00936001/ [Concomitant]
     Dates: start: 20140415
  19. ZOPICLONE [Concomitant]
     Dates: start: 20140117, end: 20140214

REACTIONS (1)
  - Stevens-Johnson syndrome [Not Recovered/Not Resolved]
